FAERS Safety Report 7592434-1 (Version None)
Quarter: 2011Q3

REPORT INFORMATION
  Report Type: 
  Country: None (occurrence: None)
  Receive Date: 20110705
  Receipt Date: 20110705
  Transmission Date: 20111222
  Serious: Yes (Other)
  Sender: FDA-Public Use
  Company Number: None

PATIENT
  Age: 86 Year
  Sex: Male
  Weight: 72.5755 kg

DRUGS (2)
  1. ARICEPT [Suspect]
     Dosage: 10MG 1 A DAY/5TH WEEK
  2. ARICEPT [Suspect]
     Indication: DEMENTIA ALZHEIMER'S TYPE
     Dosage: 5MG 1 A DAY/ 4-WEEKS
     Dates: start: 20090312, end: 20090327

REACTIONS (3)
  - DISORIENTATION [None]
  - AGGRESSION [None]
  - ABNORMAL BEHAVIOUR [None]
